FAERS Safety Report 9714255 (Version 2)
Quarter: 2013Q4

REPORT INFORMATION
  Report Type: Spontaneous
  Country: US (occurrence: US)
  Receive Date: 20131126
  Receipt Date: 20131126
  Transmission Date: 20140711
  Serious: No
  Sender: FDA-Public Use
  Company Number: US-GILEAD-2008-0019403

PATIENT
  Sex: Female
  Weight: 61.23 kg

DRUGS (6)
  1. LETAIRIS [Suspect]
     Indication: PULMONARY ARTERIAL HYPERTENSION
     Route: 048
  2. LETAIRIS [Suspect]
     Route: 048
     Dates: start: 20081121
  3. COUMADIN [Concomitant]
  4. FOSINOPRIL [Concomitant]
  5. ALBUTEROL [Concomitant]
  6. SPIRIVA [Concomitant]

REACTIONS (2)
  - Palpitations [Unknown]
  - Dyspnoea [Unknown]
